FAERS Safety Report 6253901-6 (Version None)
Quarter: 2009Q2

REPORT INFORMATION
  Report Type: 
  Country: None (occurrence: None)
  Receive Date: 20090630
  Receipt Date: 20090630
  Transmission Date: 20091009
  Serious: Yes (Other)
  Sender: FDA-Public Use
  Company Number: None

PATIENT
  Age: 42 Year
  Sex: Female
  Weight: 80.7403 kg

DRUGS (1)
  1. EFFEXOR XR [Suspect]
     Indication: GENERALISED ANXIETY DISORDER
     Dosage: 75 MG DAILY PO
     Route: 048
     Dates: start: 20070601, end: 20090615

REACTIONS (2)
  - ARRHYTHMIA [None]
  - WEIGHT INCREASED [None]
